FAERS Safety Report 6463592-7 (Version None)
Quarter: 2009Q4

REPORT INFORMATION
  Report Type: 
  Country: None (occurrence: None)
  Receive Date: 20091130
  Receipt Date: 20091130
  Transmission Date: 20100525
  Serious: Yes (Other)
  Sender: FDA-Public Use
  Company Number: None

PATIENT
  Sex: Male
  Weight: 2.6 kg

DRUGS (2)
  1. GENTAMYCIN SULFATE [Suspect]
     Indication: CONJUNCTIVITIS GONOCOCCAL NEONATAL
     Dosage: SMALL AMOUNT TO EYELIDS ONCE OPHTHALMIC ONE DOSE
     Route: 047
     Dates: start: 20091113, end: 20091113
  2. GENTAMYCIN SULFATE [Suspect]
     Indication: PROPHYLAXIS
     Dosage: SMALL AMOUNT TO EYELIDS ONCE OPHTHALMIC ONE DOSE
     Route: 047
     Dates: start: 20091113, end: 20091113

REACTIONS (4)
  - APPLICATION SITE ERYTHEMA [None]
  - APPLICATION SITE OEDEMA [None]
  - APPLICATION SITE VESICLES [None]
  - BLEPHARITIS [None]
